FAERS Safety Report 19953183 (Version 2)
Quarter: 2021Q4

REPORT INFORMATION
  Report Type: Spontaneous
  Country: ES (occurrence: ES)
  Receive Date: 20211014
  Receipt Date: 20211018
  Transmission Date: 20220303
  Serious: Yes (Other)
  Sender: FDA-Public Use
  Company Number: ES-SA-SAC20211011000972

PATIENT
  Age: 73 Year
  Sex: Female

DRUGS (1)
  1. TOUJEO [Suspect]
     Active Substance: INSULIN GLARGINE
     Indication: Type 2 diabetes mellitus
     Dosage: 28 IU
     Route: 058
     Dates: start: 2013

REACTIONS (18)
  - COVID-19 [Recovered/Resolved]
  - Vomiting [Recovered/Resolved]
  - Fatigue [Recovered/Resolved]
  - Eye pain [Recovering/Resolving]
  - Oropharyngeal discomfort [Recovered/Resolved]
  - Dysphagia [Recovered/Resolved]
  - Myalgia [Recovering/Resolving]
  - Hypoglycaemia [Recovered/Resolved]
  - Abdominal discomfort [Recovered/Resolved]
  - Dizziness [Recovered/Resolved]
  - Hyperhidrosis [Recovered/Resolved]
  - Foot fracture [Recovered/Resolved]
  - Ligament sprain [Recovered/Resolved]
  - Joint injury [Recovered/Resolved]
  - Blood glucose increased [Recovered/Resolved]
  - Incorrect dose administered by device [Not Recovered/Not Resolved]
  - Device issue [Unknown]
  - Blood glucose fluctuation [Recovered/Resolved]

NARRATIVE: CASE EVENT DATE: 20201001
